FAERS Safety Report 7320282-6 (Version None)
Quarter: 2011Q1

REPORT INFORMATION
  Report Type: 
  Country: None (occurrence: None)
  Receive Date: 20110228
  Receipt Date: 20110225
  Transmission Date: 20110831
  Serious: Yes (Other)
  Sender: FDA-Public Use
  Company Number: US-PFIZER INC-2011042037

PATIENT

DRUGS (16)
  1. CLONIDINE [Concomitant]
     Dosage: UNK
  2. NORCO [Concomitant]
     Dosage: UNK
  3. METOPROLOL [Concomitant]
     Dosage: UNK
  4. LOPERAMIDE HYDROCHLORIDE [Concomitant]
     Dosage: UNK
  5. MORPHINE [Concomitant]
     Dosage: UNK
  6. CRESTOR [Concomitant]
     Dosage: UNK
  7. VENLAFAXINE HYDROCHLORIDE [Concomitant]
     Dosage: UNK
  8. VALSARTAN [Concomitant]
     Dosage: UNK
  9. ZOMIG [Concomitant]
     Dosage: UNK
  10. DILTIAZEM HYDROCHLORIDE [Concomitant]
     Dosage: UNK
  11. POTASSIUM [Concomitant]
     Indication: MINERAL SUPPLEMENTATION
     Dosage: UNK
  12. SPIRIVA [Concomitant]
     Dosage: UNK
     Route: 055
  13. WARFARIN SODIUM [Concomitant]
     Dosage: UNK
  14. FUROSEMIDE [Concomitant]
     Dosage: UNK
  15. TIKOSYN [Suspect]
     Indication: ATRIAL FIBRILLATION
     Dosage: 250 UG, 2X/DAY
     Route: 048
     Dates: start: 20110222
  16. WELLBUTRIN [Concomitant]
     Dosage: UNK

REACTIONS (1)
  - ELECTROCARDIOGRAM QT INTERVAL ABNORMAL [None]
